FAERS Safety Report 10238748 (Version 1)
Quarter: 2014Q2

REPORT INFORMATION
  Report Type: Report from Study
  Country: FR (occurrence: FR)
  Receive Date: 20140616
  Receipt Date: 20140616
  Transmission Date: 20141212
  Serious: Yes (Other)
  Sender: FDA-Public Use
  Company Number: FR-CELGENEUS-056-21660-14060598

PATIENT
  Age: 65 Year
  Sex: Female

DRUGS (4)
  1. ABRAXANE [Suspect]
     Indication: PANCREATIC CARCINOMA METASTATIC
     Route: 041
     Dates: start: 20140204, end: 20140602
  2. 5-FU [Suspect]
     Indication: PANCREATIC CARCINOMA METASTATIC
     Route: 041
     Dates: start: 20140204, end: 20140602
  3. 5-FU [Suspect]
     Indication: PANCREATIC CARCINOMA METASTATIC
     Route: 040
     Dates: start: 20140204, end: 20140602
  4. FOLINIC ACID [Suspect]
     Indication: PANCREATIC CARCINOMA METASTATIC
     Route: 065
     Dates: start: 20140204, end: 20140602

REACTIONS (1)
  - Lymphoedema [Not Recovered/Not Resolved]
